FAERS Safety Report 5478367-5 (Version None)
Quarter: 2007Q4

REPORT INFORMATION
  Report Type: 
  Country: None (occurrence: None)
  Receive Date: 20071005
  Receipt Date: 20071003
  Transmission Date: 20080405
  Serious: Yes (Hospitalization)
  Sender: FDA-Public Use
  Company Number: B0482651A

PATIENT
  Age: 4 Year
  Sex: Male

DRUGS (6)
  1. ABACAVIR SULFATE [Suspect]
     Indication: HIV INFECTION
     Route: 048
     Dates: start: 20070706
  2. EFAVIRENZ [Suspect]
     Indication: HIV INFECTION
     Route: 048
     Dates: start: 20070706
  3. ZIDOVUDINE [Suspect]
     Indication: HIV INFECTION
     Route: 048
     Dates: start: 20070706, end: 20070801
  4. LAMIVUDINE [Suspect]
     Indication: HIV INFECTION
     Route: 048
     Dates: start: 20070706
  5. SEPTRIN [Suspect]
     Dates: start: 20070629, end: 20070720
  6. MULTI-VITAMIN [Concomitant]
     Dates: start: 20070629

REACTIONS (8)
  - ANAEMIA [None]
  - COUGH [None]
  - ERYTHEMA [None]
  - HYPERSENSITIVITY [None]
  - PRURITUS [None]
  - PYREXIA [None]
  - RASH [None]
  - RASH MACULO-PAPULAR [None]
